FAERS Safety Report 6512960-3 (Version None)
Quarter: 2009Q4

REPORT INFORMATION
  Report Type: 
  Country: None (occurrence: None)
  Receive Date: 20091222
  Receipt Date: 20091222
  Transmission Date: 20100525
  Serious: No
  Sender: FDA-Public Use
  Company Number: None

PATIENT
  Age: 55 Year
  Sex: Male

DRUGS (1)
  1. INFLIXIMAB [Suspect]
     Dosage: 406 MG ONCE IV
     Route: 042
     Dates: start: 20090908, end: 20091008

REACTIONS (5)
  - CHEST PAIN [None]
  - INFUSION RELATED REACTION [None]
  - PRURITUS [None]
  - RASH GENERALISED [None]
  - URTICARIA [None]
